FAERS Safety Report 14691132 (Version 1)
Quarter: 2018Q1

REPORT INFORMATION
  Report Type: Spontaneous
  Country: US (occurrence: US)
  Receive Date: 20180327
  Receipt Date: 20180327
  Transmission Date: 20180509
  Serious: No
  Sender: FDA-Public Use
  Company Number: None

PATIENT
  Age: 51 Year
  Sex: Male

DRUGS (1)
  1. APOKYN [Suspect]
     Active Substance: APOMORPHINE HYDROCHLORIDE
     Dosage: FREQUENCY - NOT TO EXCEED 5 DOSES PER DAY
     Route: 058

REACTIONS (1)
  - Nausea [None]

NARRATIVE: CASE EVENT DATE: 20180228
